FAERS Safety Report 6280449-5 (Version None)
Quarter: 2009Q3

REPORT INFORMATION
  Report Type: 
  Country: None (occurrence: None)
  Receive Date: 20090724
  Receipt Date: 20080909
  Transmission Date: 20100115
  Serious: No
  Sender: FDA-Public Use
  Company Number: A0711006A

PATIENT
  Age: 60 Year
  Sex: Female
  Weight: 76.8 kg

DRUGS (3)
  1. AVANDIA [Suspect]
     Dosage: 8MG PER DAY
     Route: 048
     Dates: start: 20060101
  2. METFORMIN HCL [Concomitant]
  3. LISINOPRIL [Concomitant]

REACTIONS (8)
  - ARTHRALGIA [None]
  - ILL-DEFINED DISORDER [None]
  - MUSCLE SPASMS [None]
  - OEDEMA PERIPHERAL [None]
  - PAIN [None]
  - PAIN IN EXTREMITY [None]
  - PRURITUS GENERALISED [None]
  - SWELLING [None]
